FAERS Safety Report 13278899 (Version 2)
Quarter: 2017Q1

REPORT INFORMATION
  Report Type: Spontaneous
  Country: GB (occurrence: GB)
  Receive Date: 20170228
  Receipt Date: 20170328
  Transmission Date: 20170428
  Serious: Yes (Death, Hospitalization)
  Sender: FDA-Public Use
  Company Number: GB-MYLANLABS-2017M1012531

PATIENT

DRUGS (1)
  1. CLOZARIL [Suspect]
     Active Substance: CLOZAPINE
     Indication: SCHIZOPHRENIA
     Dosage: UNK
     Route: 048
     Dates: start: 20141021

REACTIONS (5)
  - Drug dose omission [Unknown]
  - Death [Fatal]
  - Intestinal perforation [Unknown]
  - Coma [Unknown]
  - Suicide attempt [Unknown]

NARRATIVE: CASE EVENT DATE: 201702
